FAERS Safety Report 5120352-7 (Version None)
Quarter: 2006Q4

REPORT INFORMATION
  Report Type: 
  Country: None (occurrence: None)
  Receive Date: 20061002
  Receipt Date: 20061002
  Transmission Date: 20070319
  Serious: Yes (Hospitalization)
  Sender: FDA-Public Use
  Company Number: None

PATIENT
  Age: 14 Year
  Sex: Female
  Weight: 75.7507 kg

DRUGS (1)
  1. ADOXA PAK DOXYCYCLINE  1/150 MG DOAK DERMATOLOGICS [Suspect]
     Indication: ACNE
     Dosage: ONE TABLET DAILY PO
     Route: 048
     Dates: start: 20060909, end: 20060927

REACTIONS (6)
  - BRAIN OEDEMA [None]
  - FLUID INTAKE REDUCED [None]
  - HEADACHE [None]
  - HYPERSOMNIA [None]
  - ORAL INTAKE REDUCED [None]
  - VOMITING [None]
